FAERS Safety Report 26196011 (Version 1)
Quarter: 2025Q4

REPORT INFORMATION
  Report Type: Spontaneous
  Country: EU (occurrence: EU)
  Receive Date: 20251224
  Receipt Date: 20251224
  Transmission Date: 20260117
  Serious: Yes (Life-Threatening, Other)
  Sender: MERCK KGAA
  Company Number: None

PATIENT
  Age: 41 Year
  Sex: Male
  Weight: 85 kg

DRUGS (4)
  1. EUTHYROX [Suspect]
     Active Substance: LEVOTHYROXINE SODIUM
     Indication: Hypothyroidism
     Dosage: 1 PER DAY 1 TABLET
     Dates: start: 20200403
  2. DEXTROAMPHETAMINE SULFATE [Suspect]
     Active Substance: DEXTROAMPHETAMINE SULFATE
     Indication: Sensory overload
     Dosage: ABOUT 65 MG PER DAY. VARIABLY USED UP TO 100 MG PER DAY
     Dates: start: 20230331
  3. BUDESONIDE\FORMOTEROL [Concomitant]
     Active Substance: BUDESONIDE\FORMOTEROL
     Indication: Product used for unknown indication
     Dosage: INHALATION POWDER, 200/6 MICROGRAMS/DOSE
  4. TERBUTALINE [Concomitant]
     Active Substance: TERBUTALINE
     Indication: Product used for unknown indication
     Dosage: INHALATION POWDER, 0.5 MG/DOSE (MILLIGRAM PER DOSE)

REACTIONS (9)
  - Visual impairment [Recovered/Resolved]
  - Autonomic nervous system imbalance [Recovered/Resolved]
  - Idiopathic intracranial hypertension [Recovered/Resolved]
  - Delirium [Recovered/Resolved]
  - Mania [Recovered/Resolved]
  - Nausea [Recovered/Resolved]
  - Vomiting [Recovered/Resolved]
  - Pyrexia [Recovered/Resolved]
  - Chromaturia [Recovered/Resolved]
